FAERS Safety Report 8923432 (Version 1)
Quarter: 2012Q4

REPORT INFORMATION
  Report Type: 
  Country: BR (occurrence: BR)
  Receive Date: 20121123
  Receipt Date: 20121123
  Transmission Date: 20130627
  Serious: Yes (Other)
  Sender: FDA-Public Use
  Company Number: PHHY2012BR106057

PATIENT

DRUGS (1)
  1. CARBAMAZEPINE [Suspect]
     Dosage: 3 DF (200 mg tablets)
     Route: 048

REACTIONS (1)
  - Accidental overdose [Unknown]
